FAERS Safety Report 5505512-5 (Version None)
Quarter: 2007Q4

REPORT INFORMATION
  Report Type: 
  Country: None (occurrence: None)
  Receive Date: 20071102
  Receipt Date: 20071025
  Transmission Date: 20080405
  Serious: Yes (Hospitalization, Other)
  Sender: FDA-Public Use
  Company Number: PHHO2007CH03080

PATIENT
  Age: 58 Year
  Sex: Male
  Weight: 67.2 kg

DRUGS (3)
  1. CERTICAN [Suspect]
     Indication: RENAL TRANSPLANT
     Dosage: NO TREATMENT
  2. MYFORTIC [Suspect]
     Indication: RENAL TRANSPLANT
     Dosage: 720 MG, BID
     Route: 048
     Dates: start: 20060601
  3. NEORAL [Suspect]
     Indication: RENAL TRANSPLANT
     Dosage: 250 MG, BID
     Route: 048
     Dates: start: 20060601

REACTIONS (15)
  - BACTERIA STOOL IDENTIFIED [None]
  - BLOOD CREATININE INCREASED [None]
  - HEPATIC CYST INFECTION [None]
  - INCISION SITE HAEMATOMA [None]
  - LIVER OPERATION [None]
  - LYMPHOCELE [None]
  - LYMPHOCELE MARSUPIALISATION [None]
  - NEPHRECTOMY [None]
  - NEPHROPATHY TOXIC [None]
  - PYREXIA [None]
  - RENAL IMPAIRMENT [None]
  - SEROMA [None]
  - SURGERY [None]
  - WOUND COMPLICATION [None]
  - WOUND SECRETION [None]
